FAERS Safety Report 21339866 (Version 2)
Quarter: 2022Q4

REPORT INFORMATION
  Report Type: Spontaneous
  Country: AU (occurrence: AU)
  Receive Date: 20220915
  Receipt Date: 20221024
  Transmission Date: 20230113
  Serious: Yes (Other)
  Sender: FDA-Public Use
  Company Number: AU-JNJFOC-20220915790

PATIENT
  Sex: Male

DRUGS (4)
  1. INVEGA [Suspect]
     Active Substance: PALIPERIDONE
     Indication: Schizophrenia
     Route: 048
  2. ARIPIPRAZOLE [Concomitant]
     Active Substance: ARIPIPRAZOLE
  3. QUETIAPINE [Concomitant]
     Active Substance: QUETIAPINE
  4. OLANZAPINE [Concomitant]
     Active Substance: OLANZAPINE

REACTIONS (5)
  - Schizophrenia [Unknown]
  - Pulmonary artery stenosis [Unknown]
  - Mitral valve incompetence [Unknown]
  - Musculoskeletal chest pain [Recovered/Resolved]
  - Therapeutic response decreased [Unknown]
